FAERS Safety Report 16709128 (Version 2)
Quarter: 2019Q3

REPORT INFORMATION
  Report Type: Spontaneous
  Country: US (occurrence: US)
  Receive Date: 20190816
  Receipt Date: 20190930
  Transmission Date: 20191004
  Serious: Yes (Other)
  Sender: FDA-Public Use
  Company Number: US-BTG-201900128

PATIENT
  Age: 15 Year
  Sex: Female
  Weight: 60 kg

DRUGS (1)
  1. CROFAB [Suspect]
     Active Substance: CROTALIDAE POLYVALENT IMMUNE FAB (OVINE)
     Indication: SNAKE BITE
     Dosage: 4 VIALS
     Route: 042
     Dates: start: 20190606, end: 20190606

REACTIONS (6)
  - Visual impairment [Unknown]
  - Hypotension [Recovered/Resolved]
  - Hypoacusis [Unknown]
  - Tachycardia [Recovered/Resolved]
  - Product availability issue [Unknown]
  - Urticaria [Unknown]

NARRATIVE: CASE EVENT DATE: 20190606
